FAERS Safety Report 17227884 (Version 3)
Quarter: 2020Q1

REPORT INFORMATION
  Report Type: Spontaneous
  Country: US (occurrence: US)
  Receive Date: 20200103
  Receipt Date: 20200228
  Transmission Date: 20200409
  Serious: No
  Sender: FDA-Public Use
  Company Number: US-ASTRAZENECA-2019SF77417

PATIENT
  Age: 20606 Day
  Sex: Male
  Weight: 88 kg

DRUGS (2)
  1. BYDUREON [Suspect]
     Active Substance: EXENATIDE
     Indication: GLUCOSE TOLERANCE IMPAIRED
     Dosage: 2MEQ/L ONCE A WEEK
     Route: 058
     Dates: start: 20190814
  2. BYDUREON BCISE [Suspect]
     Active Substance: EXENATIDE
     Indication: GLUCOSE TOLERANCE IMPAIRED
     Route: 058
     Dates: start: 20191202

REACTIONS (12)
  - Injection site pruritus [Unknown]
  - Injection site pain [Unknown]
  - Device leakage [Unknown]
  - Product label issue [Unknown]
  - Intentional device misuse [Unknown]
  - Cough [Not Recovered/Not Resolved]
  - Weight increased [Not Recovered/Not Resolved]
  - Product dose omission [Unknown]
  - Injection site nodule [Unknown]
  - Injection site warmth [Unknown]
  - Product dispensing issue [Unknown]
  - Product use in unapproved indication [Unknown]

NARRATIVE: CASE EVENT DATE: 20191205
